FAERS Safety Report 8957029 (Version 2)
Quarter: 2012Q4

REPORT INFORMATION
  Report Type: 
  Country: JP (occurrence: JP)
  Receive Date: 20121211
  Receipt Date: 20121227
  Transmission Date: 20130627
  Serious: Yes (Death, Hospitalization)
  Sender: FDA-Public Use
  Company Number: JP-BAYER-2012-127360

PATIENT
  Age: 77 Year
  Sex: Male

DRUGS (2)
  1. NEXAVAR [Suspect]
     Indication: CARCINOMA HEPATOCELLULAR
     Dosage: 400 mg, BID
     Route: 048
     Dates: start: 20121107, end: 20121114
  2. NEXAVAR [Suspect]
     Indication: CARCINOMA HEPATOCELLULAR
     Dosage: 400 mg, QD
     Route: 048
     Dates: start: 20121115, end: 20121120

REACTIONS (9)
  - Hepatic failure [Fatal]
  - Hepatic rupture [Fatal]
  - Disseminated intravascular coagulation [Not Recovered/Not Resolved]
  - Pain [Not Recovered/Not Resolved]
  - Haemorrhage [Not Recovered/Not Resolved]
  - Hepatocellular carcinoma [Fatal]
  - Platelet count decreased [Not Recovered/Not Resolved]
  - Palmar-plantar erythrodysaesthesia syndrome [Not Recovered/Not Resolved]
  - Hypertension [Recovering/Resolving]
